FAERS Safety Report 6712363-2 (Version None)
Quarter: 2010Q2

REPORT INFORMATION
  Report Type: 
  Country: None (occurrence: None)
  Receive Date: 20100505
  Receipt Date: 20100428
  Transmission Date: 20101027
  Serious: Yes (Other)
  Sender: FDA-Public Use
  Company Number: PL-MERCK-1004POL00003

PATIENT
  Age: 24 Month
  Sex: Male
  Weight: 17 kg

DRUGS (3)
  1. SINGULAIR [Suspect]
     Indication: ASTHMA
     Route: 048
     Dates: start: 20090401, end: 20100416
  2. FLUTICASONE PROPIONATE [Concomitant]
     Route: 055
     Dates: start: 20090101
  3. CETIRIZINE HYDROCHLORIDE [Concomitant]
     Indication: ASTHMA
     Route: 048
     Dates: start: 20090101

REACTIONS (4)
  - AGGRESSION [None]
  - HALLUCINATION [None]
  - MENTAL STATUS CHANGES [None]
  - NIGHTMARE [None]
